FAERS Safety Report 4763410-9 (Version None)
Quarter: 2005Q3

REPORT INFORMATION
  Report Type: 
  Country: None (occurrence: None)
  Receive Date: 20050907
  Receipt Date: 20050907
  Transmission Date: 20060218
  Serious: Yes (Hospitalization)
  Sender: FDA-Public Use
  Company Number: None

PATIENT
  Age: 59 Year
  Sex: Male
  Weight: 68.0396 kg

DRUGS (2)
  1. VANCOMYCIN [Suspect]
     Indication: WOUND INFECTION
     Dosage: 1000MG   Q12H     IV
     Route: 042
     Dates: start: 20050726, end: 20050826
  2. CIPRO [Suspect]
     Indication: WOUND INFECTION
     Dosage: 500 MG   Q12H
     Dates: start: 20050801, end: 20050808

REACTIONS (8)
  - CHILLS [None]
  - NAUSEA [None]
  - PYREXIA [None]
  - RASH ERYTHEMATOUS [None]
  - RASH GENERALISED [None]
  - RASH PRURITIC [None]
  - SKIN EXFOLIATION [None]
  - VOMITING [None]
